FAERS Safety Report 5020077-2 (Version None)
Quarter: 2006Q2

REPORT INFORMATION
  Report Type: 
  Country: None (occurrence: None)
  Receive Date: 20060607
  Receipt Date: 20060530
  Transmission Date: 20061013
  Serious: Yes (Other)
  Sender: FDA-Public Use
  Company Number: SE-GLAXOSMITHKLINE-B0426545A

PATIENT
  Age: 74 Year
  Sex: Male

DRUGS (7)
  1. LAMICTAL [Suspect]
     Dosage: 400MG PER DAY
     Route: 048
  2. GLUCOSAMINE [Suspect]
     Indication: ARTHRITIS
     Route: 048
     Dates: start: 20051207, end: 20051215
  3. KEPPRA [Suspect]
     Dosage: 500MG PER DAY
     Route: 048
  4. SYMBICORT [Concomitant]
     Route: 065
  5. FLUNITRAZEPAM [Concomitant]
     Route: 065
  6. EVENING PRIMROSE OIL [Concomitant]
  7. OMEGA 3 [Concomitant]

REACTIONS (2)
  - CONVULSION [None]
  - DRUG INTERACTION [None]
